FAERS Safety Report 8869701 (Version 1)
Quarter: 2012Q4

REPORT INFORMATION
  Report Type: 
  Country: US (occurrence: US)
  Receive Date: 20121026
  Receipt Date: 20121026
  Transmission Date: 20130627
  Serious: No
  Sender: FDA-Public Use
  Company Number: US-AMGEN-USASP2012046148

PATIENT
  Age: 38 Year
  Sex: Female
  Weight: 78.91 kg

DRUGS (5)
  1. ENBREL [Suspect]
     Indication: PRODUCT USED FOR UNKNOWN INDICATION
     Dosage: 50 mg, qwk
     Route: 058
  2. HUMALOG [Concomitant]
     Dosage: 100 ml, UNK
  3. LANTUS [Concomitant]
     Dosage: 100 ml, UNK
  4. FOLIC ACID [Concomitant]
     Dosage: 1 mg, UNK
  5. VITAMIN D /00107901/ [Concomitant]
     Dosage: 400 UNK, UNK

REACTIONS (2)
  - Condition aggravated [Unknown]
  - Drug ineffective [Unknown]
